FAERS Safety Report 9437721 (Version 1)
Quarter: 2013Q3

REPORT INFORMATION
  Report Type: Spontaneous
  Country: JP (occurrence: JP)
  Receive Date: 20130802
  Receipt Date: 20130802
  Transmission Date: 20140515
  Serious: Yes (Other)
  Sender: FDA-Public Use
  Company Number: PHHY2013JP082739

PATIENT
  Sex: Female

DRUGS (3)
  1. DIOVAN [Suspect]
     Indication: HYPERTENSION
     Dosage: 40 MG, QD IN THE EVENING
     Route: 048
  2. LOPRESOR [Concomitant]
     Dosage: 0.5 DF
     Route: 048
  3. ATELEC [Concomitant]
     Dosage: 1 DF, UNK
     Route: 048

REACTIONS (2)
  - Loss of consciousness [Unknown]
  - Blood pressure increased [Unknown]
